FAERS Safety Report 24194398 (Version 1)
Quarter: 2024Q3

REPORT INFORMATION
  Report Type: Spontaneous
  Country: US (occurrence: None)
  Receive Date: 20240808
  Receipt Date: 20240808
  Transmission Date: 20241016
  Serious: Yes (Disabling)
  Sender: Public
  Company Number: None

PATIENT
  Age: 73 Year
  Sex: Female
  Weight: 77.85 kg

DRUGS (7)
  1. ALENDRONATE SODIUM [Suspect]
     Active Substance: ALENDRONATE SODIUM
     Indication: Osteopenia
     Dosage: 1 TABLET ONCE A WEEK ORAL ?OTHER FREQUENCY : ONCE A WEEK;?
     Route: 048
     Dates: start: 20240330, end: 20240727
  2. HUMIRA [Concomitant]
     Active Substance: ADALIMUMAB
  3. PLAQUENIL [Concomitant]
     Active Substance: HYDROXYCHLOROQUINE SULFATE
  4. SINGULAIR [Concomitant]
     Active Substance: MONTELUKAST SODIUM
  5. METOPROLOL [Concomitant]
     Active Substance: METOPROLOL
  6. CYMBALTA [Concomitant]
     Active Substance: DULOXETINE HYDROCHLORIDE
  7. CENTRUM MULTIVITAMIN FOR SENIOR WOMEN [Concomitant]

REACTIONS (5)
  - Arthralgia [None]
  - Myalgia [None]
  - Pain in extremity [None]
  - Middle insomnia [None]
  - Arthralgia [None]

NARRATIVE: CASE EVENT DATE: 20240615
